FAERS Safety Report 10833153 (Version 1)
Quarter: 2015Q1

REPORT INFORMATION
  Report Type: Spontaneous
  Country: US (occurrence: US)
  Receive Date: 20150219
  Receipt Date: 20150219
  Transmission Date: 20150721
  Serious: Yes (Hospitalization)
  Sender: FDA-Public Use
  Company Number: US-RECKITT BENCKISER PHARMACEUTICAL, INC-RB-64140-2014

PATIENT

DRUGS (5)
  1. SUBOXONE [Suspect]
     Active Substance: BUPRENORPHINE HYDROCHLORIDE\NALOXONE HYDROCHLORIDE
     Indication: DRUG DEPENDENCE
     Dosage: FURTHER DOSING DETAILS UNKNOWN
     Route: 060
     Dates: start: 2007, end: 2012
  2. SOMA [Concomitant]
     Active Substance: CARISOPRODOL
     Indication: INSOMNIA
     Dosage: FURTHER DOSING DETAILS UNKNOWN; STARTED 10 YEARS AGO
     Route: 048
  3. SUBOXONE [Suspect]
     Active Substance: BUPRENORPHINE HYDROCHLORIDE\NALOXONE HYDROCHLORIDE
     Indication: DRUG DEPENDENCE
     Dosage: SUBOXONE FILM; FURTHER DOSING DETAILS UNKNOWN
     Route: 060
     Dates: start: 2012, end: 201403
  4. KLONOPIN [Concomitant]
     Active Substance: CLONAZEPAM
     Indication: ANXIETY
     Dosage: FURTHER DOSING DETAILS UNKNOWN, STARTED 10 YEARS AGO
     Route: 048
  5. NICOTINE. [Concomitant]
     Active Substance: NICOTINE
     Indication: PRODUCT USED FOR UNKNOWN INDICATION
     Dosage: DOSING DETAILS UNKNOWN, SMOKING ELECTRONIC CIGARETTES DAILY FOR THE PAST 3 YEARS
     Route: 055

REACTIONS (11)
  - Therapeutic response unexpected [Recovered/Resolved]
  - Anxiety [Not Recovered/Not Resolved]
  - Nausea [Not Recovered/Not Resolved]
  - Diarrhoea [Not Recovered/Not Resolved]
  - Detoxification [Recovered/Resolved]
  - Stomatitis [Recovered/Resolved]
  - Drug diversion [Recovered/Resolved]
  - Drug ineffective for unapproved indication [Recovered/Resolved]
  - Drug withdrawal syndrome [Not Recovered/Not Resolved]
  - Hyperhidrosis [Not Recovered/Not Resolved]
  - Feeling of body temperature change [Not Recovered/Not Resolved]

NARRATIVE: CASE EVENT DATE: 2012
